FAERS Safety Report 16240597 (Version 5)
Quarter: 2023Q1

REPORT INFORMATION
  Report Type: Spontaneous
  Country: US (occurrence: None)
  Receive Date: 20190425
  Receipt Date: 20230227
  Transmission Date: 20230417
  Serious: Yes (Disabling, Other)
  Sender: FDA-Public Use
  Company Number: 2018SF65495

PATIENT
  Age: 52 Year
  Sex: Male
  Weight: 113.9 kg

DRUGS (28)
  1. NEXIUM [Suspect]
     Active Substance: ESOMEPRAZOLE MAGNESIUM
     Indication: Gastrooesophageal reflux disease
     Route: 048
     Dates: start: 2005, end: 2010
  2. NEXIUM 24HR [Suspect]
     Active Substance: ESOMEPRAZOLE MAGNESIUM
     Indication: Gastrooesophageal reflux disease
     Route: 048
     Dates: start: 2005, end: 2010
  3. PRILOSEC OTC [Suspect]
     Active Substance: OMEPRAZOLE MAGNESIUM
     Indication: Gastrooesophageal reflux disease
     Route: 048
     Dates: start: 1998, end: 2010
  4. OMEPRAZOLE [Suspect]
     Active Substance: OMEPRAZOLE
     Indication: Gastrooesophageal reflux disease
     Route: 065
     Dates: start: 1998, end: 2010
  5. PREVACID [Suspect]
     Active Substance: LANSOPRAZOLE
     Route: 065
  6. PREVACID 24 HR [Suspect]
     Active Substance: LANSOPRAZOLE
     Indication: Gastrooesophageal reflux disease
     Route: 065
     Dates: start: 2005, end: 2010
  7. PROTONIX [Suspect]
     Active Substance: PANTOPRAZOLE SODIUM
     Indication: Gastrooesophageal reflux disease
     Route: 065
     Dates: start: 2017
  8. PROTONIX [Suspect]
     Active Substance: PANTOPRAZOLE SODIUM
     Indication: Gastrooesophageal reflux disease
     Dosage: GENERIC, EARLY 2000
     Route: 065
     Dates: start: 2000
  9. ZEGERID [Suspect]
     Active Substance: OMEPRAZOLE\SODIUM BICARBONATE
     Indication: Gastrooesophageal reflux disease
     Route: 065
  10. HYDROCODONE [Concomitant]
     Active Substance: HYDROCODONE
  11. ADVAIR HFA [Concomitant]
     Active Substance: FLUTICASONE PROPIONATE\SALMETEROL XINAFOATE
  12. LISINOPRIL [Concomitant]
     Active Substance: LISINOPRIL
  13. SIMVASTATIN [Concomitant]
     Active Substance: SIMVASTATIN
  14. METFORMIN [Concomitant]
     Active Substance: METFORMIN HYDROCHLORIDE
  15. PROMETHAZINE [Concomitant]
     Active Substance: PROMETHAZINE HYDROCHLORIDE
  16. TRAMADOL [Concomitant]
     Active Substance: TRAMADOL
  17. COLCHICINE [Concomitant]
     Active Substance: COLCHICINE
  18. AMLODIPINE [Concomitant]
     Active Substance: AMLODIPINE BESYLATE
  19. FUROSEMIDE [Concomitant]
     Active Substance: FUROSEMIDE
  20. GLIMEPIRIDE [Concomitant]
     Active Substance: GLIMEPIRIDE
  21. ISOSORBIDE [Concomitant]
     Active Substance: ISOSORBIDE
  22. NARCAN [Concomitant]
     Active Substance: NALOXONE HYDROCHLORIDE
  23. RENVELA [Concomitant]
     Active Substance: SEVELAMER CARBONATE
  24. IBUPROFEN [Concomitant]
     Active Substance: IBUPROFEN
  25. DIAZEPAM [Concomitant]
     Active Substance: DIAZEPAM
  26. SOMA [Concomitant]
     Active Substance: CARISOPRODOL
  27. RANITIDINE [Concomitant]
     Active Substance: RANITIDINE
  28. ROLAIDS [Concomitant]
     Active Substance: CALCIUM CARBONATE\MAGNESIUM HYDROXIDE

REACTIONS (8)
  - Acute kidney injury [Not Recovered/Not Resolved]
  - Chronic kidney disease [Not Recovered/Not Resolved]
  - End stage renal disease [Unknown]
  - Renal failure [Unknown]
  - Renal injury [Unknown]
  - Nephrogenic anaemia [Unknown]
  - Hyperparathyroidism secondary [Unknown]
  - Rebound acid hypersecretion [Unknown]

NARRATIVE: CASE EVENT DATE: 20100101
